FAERS Safety Report 8661256 (Version 4)
Quarter: 2018Q3

REPORT INFORMATION
  Report Type: Spontaneous
  Country: RU (occurrence: RU)
  Receive Date: 20120712
  Receipt Date: 20180720
  Transmission Date: 20181010
  Serious: Yes (Other)
  Sender: FDA-Public Use
  Company Number: RU-009507513-1206USA00745

PATIENT
  Sex: Female

DRUGS (3)
  1. COMBIVIR [Concomitant]
     Active Substance: LAMIVUDINE\ZIDOVUDINE
     Indication: HIV INFECTION
     Dosage: 1 DF, BID
     Route: 048
     Dates: start: 20090917
  2. ISENTRESS [Suspect]
     Active Substance: RALTEGRAVIR POTASSIUM
     Indication: HIV INFECTION
     Dosage: 400 MG, BID, PER OS
     Route: 048
     Dates: start: 20100830
  3. KALETRA [Concomitant]
     Active Substance: LOPINAVIR\RITONAVIR
     Indication: HIV INFECTION
     Dosage: 2 DF, BID
     Route: 048
     Dates: start: 20090917

REACTIONS (3)
  - Maternal exposure during pregnancy [Unknown]
  - Abortion threatened [Unknown]
  - Premature separation of placenta [Unknown]

NARRATIVE: CASE EVENT DATE: 2012
